FAERS Safety Report 24096784 (Version 3)
Quarter: 2025Q4

REPORT INFORMATION
  Report Type: Spontaneous
  Country: US (occurrence: US)
  Receive Date: 20240716
  Receipt Date: 20251202
  Transmission Date: 20260118
  Serious: No
  Sender: VERTEX
  Company Number: US-VERTEX PHARMACEUTICALS-2024-011268

PATIENT
  Age: 2 Year
  Sex: Male

DRUGS (2)
  1. TRIKAFTA [Suspect]
     Active Substance: ELEXACAFTOR\IVACAFTOR\TEZACAFTOR
     Indication: Cystic fibrosis
     Dosage: LOWER DOSE
  2. TRIKAFTA [Suspect]
     Active Substance: ELEXACAFTOR\IVACAFTOR\TEZACAFTOR
     Dosage: SWITCHED THE MORNING AND EVENING DOSES

REACTIONS (6)
  - Eating disorder [Unknown]
  - Crying [Recovered/Resolved]
  - Anger [Unknown]
  - Aggression [Unknown]
  - Abnormal behaviour [Unknown]
  - Stress [Unknown]
